FAERS Safety Report 7361526-4 (Version None)
Quarter: 2011Q1

REPORT INFORMATION
  Report Type: 
  Country: None (occurrence: None)
  Receive Date: 20110318
  Receipt Date: 20110310
  Transmission Date: 20110831
  Serious: Yes (Hospitalization, Other)
  Sender: FDA-Public Use
  Company Number: US-ROCHE-747986

PATIENT
  Sex: Female
  Weight: 65.8 kg

DRUGS (7)
  1. MIRENA [Concomitant]
  2. ACCUTANE [Suspect]
     Indication: ACNE
     Route: 065
     Dates: start: 19890801, end: 19891201
  3. ACCUTANE [Suspect]
     Route: 065
     Dates: start: 19910201, end: 19910601
  4. IBUPROFEN [Concomitant]
  5. ACCUTANE [Suspect]
     Dosage: 2000/2001 (EXACT DATES NOT KNOWN)
     Route: 065
  6. FOLIC ACID [Concomitant]
  7. NORETHISTERONE [Concomitant]
     Dosage: REPORTED: CAMILA

REACTIONS (8)
  - OSTEOPENIA [None]
  - MITRAL VALVE PROLAPSE [None]
  - COLITIS ULCERATIVE [None]
  - PNEUMONIA [None]
  - CYTOMEGALOVIRUS HEPATITIS [None]
  - INFLAMMATORY BOWEL DISEASE [None]
  - EMOTIONAL DISTRESS [None]
  - PIGMENTATION DISORDER [None]
